FAERS Safety Report 7967613-1 (Version None)
Quarter: 2011Q4

REPORT INFORMATION
  Report Type: 
  Country: None (occurrence: None)
  Receive Date: 20111209
  Receipt Date: 20111205
  Transmission Date: 20120403
  Serious: Yes (Hospitalization)
  Sender: FDA-Public Use
  Company Number: US-JNJFOC-20110503573

PATIENT
  Sex: Female
  Weight: 58.97 kg

DRUGS (6)
  1. TEGRETOL [Concomitant]
     Indication: CONVULSION
     Dosage: 200MG -} 100MG
     Route: 048
  2. MOTRIN IB [Suspect]
     Indication: HEADACHE
     Route: 048
     Dates: start: 20110321
  3. MOTRIN IB [Suspect]
     Indication: SINUSITIS
     Route: 048
     Dates: start: 20110321
  4. ACETAMINOPHEN [Suspect]
     Indication: HEADACHE
     Route: 048
     Dates: start: 20110301
  5. MOTRIN IB [Suspect]
     Indication: PYREXIA
     Route: 048
     Dates: start: 20110321
  6. ACETAMINOPHEN [Suspect]
     Route: 048

REACTIONS (4)
  - PYREXIA [None]
  - RENAL FAILURE ACUTE [None]
  - RENAL TUBULAR NECROSIS [None]
  - HEADACHE [None]
